FAERS Safety Report 16469163 (Version 1)
Quarter: 2019Q2

REPORT INFORMATION
  Report Type: Spontaneous
  Country: LT (occurrence: LT)
  Receive Date: 20190624
  Receipt Date: 20190624
  Transmission Date: 20190711
  Serious: Yes (Hospitalization)
  Sender: FDA-Public Use
  Company Number: PHHY2019LT140266

PATIENT
  Age: 70 Year
  Sex: Female

DRUGS (8)
  1. CARBOPLATIN. [Suspect]
     Active Substance: CARBOPLATIN
     Indication: OVARIAN CANCER
     Route: 065
  2. BEMIPARIN [Concomitant]
     Active Substance: BEMIPARIN
     Indication: DEEP VEIN THROMBOSIS
  3. WARFARIN [Concomitant]
     Active Substance: WARFARIN
     Indication: PRODUCT USED FOR UNKNOWN INDICATION
     Route: 065
  4. MEROPENEM. [Concomitant]
     Active Substance: MEROPENEM
     Indication: SEPSIS
     Route: 065
  5. MEROPENEM. [Concomitant]
     Active Substance: MEROPENEM
     Indication: PNEUMONIA
  6. PACLITAXEL. [Suspect]
     Active Substance: PACLITAXEL
     Indication: OVARIAN CANCER
     Route: 065
  7. BEMIPARIN [Concomitant]
     Active Substance: BEMIPARIN
     Indication: PULMONARY EMBOLISM
     Dosage: 7500 IU, QD (7500 IU X 1 A DAY)
     Route: 058
  8. CEFUROXIME. [Concomitant]
     Active Substance: CEFUROXIME
     Indication: PNEUMONIA
     Route: 042

REACTIONS (15)
  - Anaemia [Unknown]
  - Sepsis [Recovered/Resolved]
  - Tachycardia [Unknown]
  - Pneumonia [Recovered/Resolved]
  - Leukocytosis [Unknown]
  - Hypokalaemia [Unknown]
  - Breath sounds abnormal [Unknown]
  - Hyponatraemia [Unknown]
  - Pyrexia [Recovered/Resolved]
  - Pulmonary embolism [Unknown]
  - Thrombocytopenia [Recovered/Resolved]
  - Hepatic cancer metastatic [Unknown]
  - Rales [Unknown]
  - Asthenia [Recovered/Resolved]
  - Thrombosis [Unknown]
